FAERS Safety Report 4812314-1 (Version None)
Quarter: 2005Q4

REPORT INFORMATION
  Report Type: 
  Country: None (occurrence: None)
  Receive Date: 20051028
  Receipt Date: 20050110
  Transmission Date: 20060501
  Serious: No
  Sender: FDA-Public Use
  Company Number: US-GLAXOSMITHKLINE-A0540097A

PATIENT
  Sex: Female

DRUGS (1)
  1. ADVAIR DISKUS 100/50 [Suspect]
     Dosage: 1PUFF TWICE PER DAY
     Route: 055

REACTIONS (6)
  - BONE DENSITY DECREASED [None]
  - DRUG INEFFECTIVE [None]
  - DRY MOUTH [None]
  - ORAL MUCOSAL DISCOLOURATION [None]
  - TONGUE DRY [None]
  - VISION BLURRED [None]
